FAERS Safety Report 15977542 (Version 3)
Quarter: 2019Q1

REPORT INFORMATION
  Report Type: Report from Study
  Country: US (occurrence: US)
  Receive Date: 20190218
  Receipt Date: 20190318
  Transmission Date: 20190418
  Serious: Yes (Death, Hospitalization, Other)
  Sender: FDA-Public Use
  Company Number: US-GILEAD-2019-0389484

PATIENT
  Age: 28 Year
  Sex: Female
  Weight: 68 kg

DRUGS (2)
  1. AMBRISENTAN [Suspect]
     Active Substance: AMBRISENTAN
     Indication: PULMONARY ARTERIAL HYPERTENSION
     Dosage: 5 MG
     Route: 065
     Dates: start: 20141226
  2. AMBRISENTAN [Suspect]
     Active Substance: AMBRISENTAN
     Indication: HIV INFECTION

REACTIONS (6)
  - Pulmonary hypertension [Fatal]
  - Deep vein thrombosis [Unknown]
  - Pulmonary embolism [Fatal]
  - Hypotension [Unknown]
  - Fluid overload [Unknown]
  - Malaise [Unknown]
